FAERS Safety Report 19164874 (Version 1)
Quarter: 2021Q2

REPORT INFORMATION
  Report Type: Spontaneous
  Country: US (occurrence: US)
  Receive Date: 20210421
  Receipt Date: 20210421
  Transmission Date: 20210717
  Serious: No
  Sender: FDA-Public Use
  Company Number: US-PARATEK PHARMACEUTICALS, INC.-2021PTK00027

PATIENT
  Age: 43 Year
  Sex: Female

DRUGS (2)
  1. NUZYRA [Suspect]
     Active Substance: OMADACYCLINE
     Indication: MIGRAINE
     Dosage: 300 MG, 1X/DAY
     Route: 048
     Dates: start: 20200903
  2. NUZYRA [Suspect]
     Active Substance: OMADACYCLINE
     Indication: HIDRADENITIS

REACTIONS (3)
  - Lip swelling [Unknown]
  - Off label use [Not Recovered/Not Resolved]
  - Eye swelling [Unknown]

NARRATIVE: CASE EVENT DATE: 20200903
